FAERS Safety Report 9214949 (Version 2)
Quarter: 2013Q3

REPORT INFORMATION
  Report Type: Report from Study
  Country: JP (occurrence: JP)
  Receive Date: 20130405
  Receipt Date: 20130717
  Transmission Date: 20140515
  Serious: Yes (Disabling)
  Sender: FDA-Public Use
  Company Number: JP-GLAXOSMITHKLINE-B0879572A

PATIENT
  Age: 47 Year
  Sex: Female
  Weight: 72 kg

DRUGS (21)
  1. REVOLADE [Suspect]
     Indication: IMMUNE THROMBOCYTOPENIC PURPURA
     Route: 048
     Dates: start: 20120405, end: 20120411
  2. REVOLADE [Suspect]
     Indication: IMMUNE THROMBOCYTOPENIC PURPURA
     Route: 048
     Dates: start: 20120412, end: 20120418
  3. REVOLADE [Suspect]
     Indication: IMMUNE THROMBOCYTOPENIC PURPURA
     Route: 048
     Dates: start: 20120419, end: 20120430
  4. REVOLADE [Suspect]
     Indication: IMMUNE THROMBOCYTOPENIC PURPURA
     Route: 048
     Dates: start: 20120501, end: 20120611
  5. REVOLADE [Suspect]
     Indication: IMMUNE THROMBOCYTOPENIC PURPURA
     Route: 048
     Dates: start: 20120612, end: 20120709
  6. REVOLADE [Suspect]
     Indication: IMMUNE THROMBOCYTOPENIC PURPURA
     Route: 048
     Dates: start: 20120710, end: 20121001
  7. REVOLADE [Suspect]
     Indication: IMMUNE THROMBOCYTOPENIC PURPURA
     Route: 048
     Dates: start: 20121002
  8. REVLIMID [Suspect]
     Route: 048
  9. LOSIZOPILON [Concomitant]
     Route: 048
  10. TASMOLIN [Concomitant]
     Route: 048
  11. RISPERDAL [Concomitant]
     Route: 048
  12. BASEN [Concomitant]
     Route: 048
  13. AMARYL [Concomitant]
     Route: 048
  14. JANUVIA [Concomitant]
     Route: 048
     Dates: end: 20120904
  15. JANUVIA [Concomitant]
     Route: 048
     Dates: start: 20120905
  16. ACTOS [Concomitant]
     Route: 048
     Dates: end: 20130122
  17. ACTOS [Concomitant]
     Route: 048
     Dates: start: 20130123
  18. CRESTOR [Concomitant]
     Route: 048
  19. MUCOSTA [Concomitant]
     Route: 048
     Dates: start: 20120403
  20. TAKEPRON [Concomitant]
     Route: 048
     Dates: start: 20120403
  21. VOGLIBOSE [Concomitant]
     Route: 048

REACTIONS (1)
  - Diabetes mellitus [Not Recovered/Not Resolved]
